FAERS Safety Report 4987573-5 (Version None)
Quarter: 2006Q2

REPORT INFORMATION
  Report Type: 
  Country: None (occurrence: None)
  Receive Date: 20060424
  Receipt Date: 20060413
  Transmission Date: 20061013
  Serious: Yes (Hospitalization)
  Sender: FDA-Public Use
  Company Number: CIP06000841

PATIENT
  Age: 84 Year
  Sex: Female

DRUGS (9)
  1. ACTONEL [Suspect]
     Indication: OSTEOPOROSIS
     Dosage: 35 MG ONCE WEEKLY, ORAL
     Route: 048
     Dates: start: 20010101
  2. WARFARIN SODIUM [Concomitant]
  3. TRIAMCINOLONE (TRIAMCINOLONE) CREAM [Concomitant]
  4. LIDODERM (LIDOCAINE) PATCH [Concomitant]
  5. TOPROL-XL [Concomitant]
  6. DILTIAZEM [Concomitant]
  7. CALCIUM (CALCIUM) [Concomitant]
  8. VITAMIN D [Concomitant]
  9. IMODIUM A-D [Concomitant]

REACTIONS (6)
  - BACK PAIN [None]
  - BASAL CELL CARCINOMA [None]
  - DIARRHOEA [None]
  - DIFFICULTY IN WALKING [None]
  - NEUROPATHY PERIPHERAL [None]
  - RASH PRURITIC [None]
